FAERS Safety Report 9444498 (Version 1)
Quarter: 2013Q3

REPORT INFORMATION
  Report Type: Spontaneous
  Country: US (occurrence: None)
  Receive Date: 20130806
  Receipt Date: 20130806
  Transmission Date: 20140515
  Serious: Yes (Hospitalization)
  Sender: FDA-Public Use
  Company Number: None

PATIENT
  Age: 35 Year
  Sex: Female
  Weight: 72.58 kg

DRUGS (2)
  1. PARACETAMOL [Suspect]
     Indication: HEADACHE
     Dosage: 500MG  EVERY 6 HOURS  ORAL
     Route: 048
     Dates: start: 20130713, end: 20130713
  2. ACETAMINOPHEN [Suspect]
     Indication: PYREXIA
     Dosage: 500MG EVERY 6 HOURS  ORAL
     Route: 048
     Dates: start: 20130714, end: 20130718

REACTIONS (3)
  - Rash [None]
  - Pyrexia [None]
  - Gait disturbance [None]
